FAERS Safety Report 20496528 (Version 1)
Quarter: 2022Q1

REPORT INFORMATION
  Report Type: Report from Study
  Country: US (occurrence: US)
  Receive Date: 20220221
  Receipt Date: 20220221
  Transmission Date: 20220424
  Serious: Yes (Other)
  Sender: FDA-Public Use
  Company Number: US-REGENERON PHARMACEUTICALS, INC.-2022-14759

PATIENT

DRUGS (29)
  1. EYLEA [Suspect]
     Active Substance: AFLIBERCEPT
     Indication: Diabetic retinopathy
     Dosage: 2 MG/0.05ML, ONCE MONTHLY INTRAVITERALLY BOTH EYES
     Route: 031
     Dates: start: 20190110
  2. EYLEA [Suspect]
     Active Substance: AFLIBERCEPT
     Indication: Diabetic retinal oedema
     Dosage: 1 MG, UNK, OU
     Route: 031
     Dates: start: 20220103, end: 20220103
  3. AVASTIN [Concomitant]
     Active Substance: BEVACIZUMAB
     Indication: Diabetic retinopathy
     Dosage: UNK, OD
     Dates: start: 20180412, end: 20180412
  4. AVASTIN [Concomitant]
     Active Substance: BEVACIZUMAB
     Indication: Diabetic retinal oedema
     Dosage: UNK, OS
     Dates: start: 20180418, end: 20180418
  5. AVASTIN [Concomitant]
     Active Substance: BEVACIZUMAB
     Dosage: UNK, OD
     Dates: start: 20180522, end: 20180522
  6. AVASTIN [Concomitant]
     Active Substance: BEVACIZUMAB
     Dosage: UNK, OS
     Dates: start: 20180529, end: 20180529
  7. AVASTIN [Concomitant]
     Active Substance: BEVACIZUMAB
     Dosage: UNK, OD
     Dates: start: 20180703, end: 20180703
  8. AVASTIN [Concomitant]
     Active Substance: BEVACIZUMAB
     Dosage: UNK, OS
     Dates: start: 20180808, end: 20180808
  9. AVASTIN [Concomitant]
     Active Substance: BEVACIZUMAB
     Dosage: UNK, OD
     Dates: start: 20180814, end: 20180814
  10. AVASTIN [Concomitant]
     Active Substance: BEVACIZUMAB
     Dosage: UNK, OS
     Dates: start: 20181129, end: 20181129
  11. AVASTIN [Concomitant]
     Active Substance: BEVACIZUMAB
     Dosage: UNK, OD
     Dates: start: 20181206, end: 20181206
  12. AVASTIN [Concomitant]
     Active Substance: BEVACIZUMAB
     Dosage: UNK, OD
     Dates: start: 20190122, end: 20190122
  13. AVASTIN [Concomitant]
     Active Substance: BEVACIZUMAB
     Dosage: UNK, OS
     Dates: start: 20190226, end: 20190226
  14. AVASTIN [Concomitant]
     Active Substance: BEVACIZUMAB
     Dosage: UNK, OD
     Dates: start: 20200702, end: 20200702
  15. AVASTIN [Concomitant]
     Active Substance: BEVACIZUMAB
     Dosage: UNK, OS
     Dates: start: 20200818, end: 20200818
  16. AVASTIN [Concomitant]
     Active Substance: BEVACIZUMAB
     Dosage: UNK, OD
     Dates: start: 20200818, end: 20200818
  17. AVASTIN [Concomitant]
     Active Substance: BEVACIZUMAB
     Dosage: UNK, OD
     Dates: start: 20200929, end: 20200929
  18. AVASTIN [Concomitant]
     Active Substance: BEVACIZUMAB
     Dosage: UNK, OS
     Dates: start: 20200929, end: 20200929
  19. AVASTIN [Concomitant]
     Active Substance: BEVACIZUMAB
     Dosage: UNK, OS
     Dates: start: 20201103, end: 20201103
  20. AVASTIN [Concomitant]
     Active Substance: BEVACIZUMAB
     Dosage: UNK, OD
     Dates: start: 20201103, end: 20201103
  21. AVASTIN [Concomitant]
     Active Substance: BEVACIZUMAB
     Dosage: UNK, OS
     Dates: start: 20201215, end: 20201215
  22. AVASTIN [Concomitant]
     Active Substance: BEVACIZUMAB
     Dosage: UNK, OS
     Dates: start: 20210625, end: 20210525
  23. ILUVIEN [Concomitant]
     Active Substance: FLUOCINOLONE ACETONIDE
     Indication: Diabetic retinopathy
     Dosage: UNK, OS
     Dates: start: 20210816, end: 20210816
  24. ILUVIEN [Concomitant]
     Active Substance: FLUOCINOLONE ACETONIDE
     Indication: Diabetic retinal oedema
  25. DEXAMETHASONE [Concomitant]
     Active Substance: DEXAMETHASONE
     Indication: Diabetic retinopathy
     Dosage: UNK, OS
     Dates: start: 20210301, end: 20210301
  26. DEXAMETHASONE [Concomitant]
     Active Substance: DEXAMETHASONE
     Indication: Diabetic retinal oedema
  27. GABAPENTIN [Concomitant]
     Active Substance: GABAPENTIN
     Indication: Product used for unknown indication
  28. GABLOFEN [Concomitant]
     Active Substance: BACLOFEN
     Indication: Product used for unknown indication
  29. INSULIN NOS [Concomitant]
     Active Substance: INSULIN NOS
     Indication: Product used for unknown indication

REACTIONS (4)
  - Blindness transient [Recovered/Resolved]
  - Vision blurred [Recovered/Resolved]
  - Metamorphopsia [Unknown]
  - Vitreous floaters [Unknown]

NARRATIVE: CASE EVENT DATE: 20220103
